FAERS Safety Report 23679190 (Version 3)
Quarter: 2024Q2

REPORT INFORMATION
  Report Type: Spontaneous
  Country: IT (occurrence: IT)
  Receive Date: 20240327
  Receipt Date: 20240429
  Transmission Date: 20240716
  Serious: Yes (Other)
  Sender: FDA-Public Use
  Company Number: IT-PFIZER INC-PV202400034090

PATIENT
  Age: 68 Year
  Sex: Female

DRUGS (1)
  1. ESTRING [Suspect]
     Active Substance: ESTRADIOL
     Indication: Uterine prolapse
     Dosage: UNK, EVERY 3 MONTHS

REACTIONS (4)
  - Vaginal haemorrhage [Recovered/Resolved]
  - Urinary incontinence [Recovered/Resolved]
  - Device use issue [Unknown]
  - Off label use [Unknown]
